APPROVED DRUG PRODUCT: DEXTROAMPHETAMINE SULFATE
Active Ingredient: DEXTROAMPHETAMINE SULFATE
Strength: 10MG
Dosage Form/Route: TABLET;ORAL
Application: A090652 | Product #002
Applicant: EPIC PHARMA LLC
Approved: Mar 7, 2014 | RLD: No | RS: No | Type: DISCN